FAERS Safety Report 17466488 (Version 1)
Quarter: 2020Q1

REPORT INFORMATION
  Report Type: Spontaneous
  Country: RO (occurrence: RO)
  Receive Date: 20200227
  Receipt Date: 20200227
  Transmission Date: 20200409
  Serious: Yes (Death)
  Sender: FDA-Public Use
  Company Number: RO-ACCORD-173881

PATIENT
  Age: 65 Year
  Sex: Female
  Weight: 60 kg

DRUGS (2)
  1. CISPLATIN. [Concomitant]
     Active Substance: CISPLATIN
  2. CAPECITABINE ACCORD [Suspect]
     Active Substance: CAPECITABINE
     Indication: GASTRIC CANCER
     Route: 048
     Dates: start: 20191212, end: 20191223

REACTIONS (1)
  - Bone marrow failure [Fatal]

NARRATIVE: CASE EVENT DATE: 20191229
